FAERS Safety Report 15392611 (Version 2)
Quarter: 2018Q4

REPORT INFORMATION
  Report Type: Report from Study
  Country: JP (occurrence: JP)
  Receive Date: 20180917
  Receipt Date: 20181107
  Transmission Date: 20190204
  Serious: Yes (Death, Life-Threatening, Other)
  Sender: FDA-Public Use
  Company Number: JP-DSJP-DSJ-2018-140126

PATIENT

DRUGS (24)
  1. LIXIANA OD TABLETS [Suspect]
     Active Substance: EDOXABAN TOSYLATE
     Indication: PRODUCT USED FOR UNKNOWN INDICATION
     Dosage: UNK
     Route: 065
     Dates: start: 20180109, end: 20180626
  2. PREPENON [Concomitant]
     Active Substance: MORPHINE HYDROCHLORIDE
     Dosage: UNK
     Route: 065
     Dates: start: 20180717
  3. LEVOFLOXACIN. [Concomitant]
     Active Substance: LEVOFLOXACIN
     Dosage: UNK
     Route: 065
  4. LIXIANA OD TABLETS [Suspect]
     Active Substance: EDOXABAN TOSYLATE
     Dosage: UNK
     Route: 065
     Dates: start: 20180630, end: 20180710
  5. LIXIANA OD TABLETS [Suspect]
     Active Substance: EDOXABAN TOSYLATE
     Dosage: UNK
     Route: 065
     Dates: start: 20180714
  6. DIFLUCAN [Concomitant]
     Active Substance: FLUCONAZOLE
     Dosage: UNK
     Route: 065
     Dates: start: 20180703
  7. HEPARINOID                         /00723702/ [Concomitant]
     Dosage: UNK
     Route: 065
     Dates: start: 20180525
  8. ISOTONIC SODIUM CHLORIDE SOLUTION [Concomitant]
     Active Substance: SODIUM CHLORIDE
     Dosage: UNK
     Route: 065
     Dates: start: 20180710
  9. HUMULIN R [Concomitant]
     Active Substance: INSULIN HUMAN
     Dosage: UNK
     Route: 065
     Dates: start: 20180713
  10. ACYCLOVIR                          /00587301/ [Concomitant]
     Active Substance: ACYCLOVIR
     Dosage: UNK
     Route: 065
  11. BAKTAR [Concomitant]
     Active Substance: SULFAMETHOXAZOLE\TRIMETHOPRIM
     Dosage: UNK
     Route: 065
     Dates: start: 20180703
  12. NERIZA [Concomitant]
     Dosage: UNK
     Route: 065
     Dates: start: 20180628
  13. NEOSTELIN GREEN [Concomitant]
     Active Substance: BENZETHONIUM CHLORIDE
     Dosage: UNK
     Route: 065
     Dates: start: 20180529
  14. METHOTREXATE. [Concomitant]
     Active Substance: METHOTREXATE
     Dosage: UNK
     Route: 065
  15. HYALEIN MINI [Concomitant]
     Active Substance: HYALURONATE SODIUM
     Dosage: UNK
     Route: 065
     Dates: start: 20180620
  16. OLIVE OIL [Concomitant]
     Active Substance: OLIVE OIL
     Dosage: UNK
     Route: 065
     Dates: start: 20180704
  17. METHYLPREDNISOLONE. [Suspect]
     Active Substance: METHYLPREDNISOLONE
     Indication: ACUTE GRAFT VERSUS HOST DISEASE
     Dosage: 120 MG, QD
     Route: 042
     Dates: start: 20180712, end: 20180717
  18. LANSOPRAZOLE. [Concomitant]
     Active Substance: LANSOPRAZOLE
     Dosage: UNK
     Route: 065
     Dates: start: 20180214
  19. BISOPROLOL FUMARATE. [Concomitant]
     Active Substance: BISOPROLOL FUMARATE
     Dosage: UNK
     Route: 065
     Dates: start: 20180131
  20. SERENACE [Concomitant]
     Active Substance: HALOPERIDOL
     Dosage: UNK
     Route: 065
     Dates: start: 20180713
  21. PROGRAF [Concomitant]
     Active Substance: TACROLIMUS\TACROLIMUS ANHYDROUS
     Dosage: UNK
     Route: 065
  22. INCB039110 [Suspect]
     Active Substance: ITACITINIB
     Indication: ACUTE GRAFT VERSUS HOST DISEASE
     Dosage: 200 MG, QD
     Route: 048
     Dates: start: 20180713, end: 20180717
  23. ZINC OXIDE SIMPLE OINTMENT [Concomitant]
     Active Substance: ZINC OXIDE
     Dosage: UNK
     Route: 065
     Dates: start: 20180704
  24. MEROPENEM. [Concomitant]
     Active Substance: MEROPENEM
     Dosage: UNK
     Route: 065
     Dates: start: 20180711

REACTIONS (4)
  - Lower gastrointestinal haemorrhage [Recovered/Resolved]
  - Acute graft versus host disease [Fatal]
  - Lower gastrointestinal haemorrhage [Fatal]
  - Presyncope [Not Recovered/Not Resolved]

NARRATIVE: CASE EVENT DATE: 20180626
